FAERS Safety Report 8875255 (Version 1)
Quarter: 2012Q4

REPORT INFORMATION
  Report Type: Report from Study
  Country: IT (occurrence: IT)
  Receive Date: 20121029
  Receipt Date: 20121029
  Transmission Date: 20130627
  Serious: Yes (Hospitalization)
  Sender: FDA-Public Use
  Company Number: IT-SANOFI-AVENTIS-2012SA077665

PATIENT
  Age: 77 Year
  Sex: Male
  Weight: 70 kg

DRUGS (8)
  1. OXALIPLATIN [Suspect]
     Indication: MALIGNANT NEOPLASM OF COLON
     Dosage: single dose
     Route: 042
     Dates: start: 20120124, end: 20120601
  2. OXALIPLATIN [Suspect]
     Indication: MALIGNANT NEOPLASM OF COLON
     Dosage: single dose
     Route: 042
     Dates: start: 20120601
  3. BEVACIZUMAB [Suspect]
     Indication: MALIGNANT NEOPLASM OF COLON
     Dosage: single dose
     Route: 042
     Dates: start: 20120124
  4. FOLINIC ACID [Suspect]
     Indication: MALIGNANT NEOPLASM OF COLON
     Route: 042
     Dates: start: 20120124
  5. FLUOROURACIL [Suspect]
     Indication: MALIGNANT NEOPLASM OF COLON
     Dosage: single dose
     Route: 042
     Dates: start: 20120124, end: 20120601
  6. FLUOROURACIL [Suspect]
     Indication: MALIGNANT NEOPLASM OF COLON
     Route: 042
     Dates: start: 20120601
  7. SPIRIVA [Concomitant]
     Dates: start: 20120123
  8. OLMESARTAN [Concomitant]
     Dates: start: 20120123

REACTIONS (1)
  - Acute myocardial infarction [Unknown]
